FAERS Safety Report 12143003 (Version 2)
Quarter: 2016Q1

REPORT INFORMATION
  Report Type: Spontaneous
  Country: FR (occurrence: FR)
  Receive Date: 20160303
  Receipt Date: 20160310
  Transmission Date: 20160526
  Serious: Yes (Other)
  Sender: FDA-Public Use
  Company Number: FR-MALLINCKRODT-T201600715

PATIENT
  Age: 66 Year
  Sex: Male
  Weight: 120 kg

DRUGS (4)
  1. HEPARINE                           /00027701/ [Concomitant]
     Dosage: 5000 IU, UNK
     Route: 013
     Dates: start: 20160225
  2. OPTIRAY 350 [Suspect]
     Active Substance: IOVERSOL
     Indication: ARTERIOGRAM CORONARY
     Dosage: 240 ML, SINGLE
     Route: 016
     Dates: start: 20160225, end: 20160225
  3. KARDEGIC [Concomitant]
     Active Substance: ASPIRIN LYSINE
     Indication: PRODUCT USED FOR UNKNOWN INDICATION
     Dosage: 75 MG, UNK
     Route: 048
  4. RISORDAN                           /00110502/ [Concomitant]
     Indication: PRODUCT USED FOR UNKNOWN INDICATION
     Dosage: 1 MG
     Route: 013
     Dates: start: 20160225

REACTIONS (1)
  - Ventricular fibrillation [Recovered/Resolved]

NARRATIVE: CASE EVENT DATE: 20160225
